FAERS Safety Report 17282700 (Version 1)
Quarter: 2020Q1

REPORT INFORMATION
  Report Type: Spontaneous
  Country: US (occurrence: US)
  Receive Date: 20200117
  Receipt Date: 20200117
  Transmission Date: 20200409
  Serious: No
  Sender: FDA-Public Use
  Company Number: None

PATIENT
  Age: 22 Year
  Sex: Male
  Weight: 85.5 kg

DRUGS (2)
  1. IBUPROFEN. [Concomitant]
     Active Substance: IBUPROFEN
  2. PENICILLIN V K 500MG TABLET [Suspect]
     Active Substance: PENICILLIN V POTASSIUM
     Indication: TOOTH INFECTION
     Dosage: ?          QUANTITY:28 TABLET(S);?
     Route: 048
     Dates: start: 20200114, end: 20200114

REACTIONS (8)
  - Tooth infection [None]
  - Abdominal pain upper [None]
  - Pyrexia [None]
  - Diarrhoea [None]
  - Chills [None]
  - Influenza like illness [None]
  - Dyspepsia [None]
  - Pain [None]

NARRATIVE: CASE EVENT DATE: 20200115
